FAERS Safety Report 12263037 (Version 1)
Quarter: 2016Q2

REPORT INFORMATION
  Report Type: Spontaneous
  Country: JP (occurrence: JP)
  Receive Date: 20160413
  Receipt Date: 20160413
  Transmission Date: 20160815
  Serious: Yes (Other)
  Sender: FDA-Public Use
  Company Number: JP-FRESENIUS KABI-FK201601848

PATIENT
  Age: 66 Year
  Sex: Female

DRUGS (4)
  1. VINCRISTINE (MANUFACTURER UNKNOWN) [Suspect]
     Active Substance: VINCRISTINE
     Indication: PERITONEAL MESOTHELIOMA MALIGNANT
     Route: 065
     Dates: start: 20060511
  2. DACARBAZINE (MANUFACTURER UNKNOWN) [Suspect]
     Active Substance: DACARBAZINE
     Indication: PERITONEAL MESOTHELIOMA MALIGNANT
     Route: 065
     Dates: start: 20060511
  3. DOXORUBICIN [Suspect]
     Active Substance: DOXORUBICIN
     Indication: PERITONEAL MESOTHELIOMA MALIGNANT
  4. CYCLOPHOSPHAMIDE (MANUFACTURER UNKNOWN) [Suspect]
     Active Substance: CYCLOPHOSPHAMIDE
     Indication: PERITONEAL MESOTHELIOMA MALIGNANT
     Route: 065
     Dates: start: 20060511

REACTIONS (2)
  - Neutropenia [Recovered/Resolved]
  - Sepsis [Recovered/Resolved]
